FAERS Safety Report 18285044 (Version 1)
Quarter: 2020Q3

REPORT INFORMATION
  Report Type: Report from Study
  Country: US (occurrence: US)
  Receive Date: 20200918
  Receipt Date: 20200918
  Transmission Date: 20201103
  Serious: Yes (Other)
  Sender: FDA-Public Use
  Company Number: US-TEVA-2020-US-1829279

PATIENT
  Age: 70 Year
  Sex: Male

DRUGS (11)
  1. VITAMIN D3 [Concomitant]
     Active Substance: CHOLECALCIFEROL
  2. BENADRYL [Concomitant]
     Active Substance: DIPHENHYDRAMINE HYDROCHLORIDE
  3. CYMBALTA [Concomitant]
     Active Substance: DULOXETINE HYDROCHLORIDE
  4. FISH OIL [Concomitant]
     Active Substance: FISH OIL
  5. ALEVE [Concomitant]
     Active Substance: NAPROXEN SODIUM
  6. BACLOFEN. [Concomitant]
     Active Substance: BACLOFEN
  7. LIPITOR [Concomitant]
     Active Substance: ATORVASTATIN CALCIUM
  8. ZINC. [Concomitant]
     Active Substance: ZINC
  9. BAYER LOW [Concomitant]
  10. IRON [Concomitant]
     Active Substance: IRON
  11. COPAXONE [Suspect]
     Active Substance: GLATIRAMER ACETATE
     Indication: MULTIPLE SCLEROSIS
     Dosage: COPAXONE 40 MG THREE TIMES PER WEEK
     Route: 058
     Dates: start: 20180220

REACTIONS (1)
  - Prostate cancer [Not Recovered/Not Resolved]
